FAERS Safety Report 5079069-X (Version None)
Quarter: 2006Q3

REPORT INFORMATION
  Report Type: 
  Country: None (occurrence: None)
  Receive Date: 20060808
  Receipt Date: 20060726
  Transmission Date: 20061208
  Serious: Yes (Hospitalization)
  Sender: FDA-Public Use
  Company Number: 2006092547

PATIENT
  Age: 78 Year
  Sex: Female
  Weight: 61 kg

DRUGS (12)
  1. SOLU-MEDROL [Suspect]
     Indication: DRUG USE FOR UNKNOWN INDICATION
     Dosage: INTRAVENOUS
     Route: 042
     Dates: start: 20050616
  2. POLARAMINE [Suspect]
     Indication: DRUG USE FOR UNKNOWN INDICATION
     Dosage: INTRAVENOUS
     Route: 042
     Dates: start: 20050616
  3. RANITIDINE [Suspect]
     Indication: DRUG USE FOR UNKNOWN INDICATION
     Dosage: INTRAVENOUS
     Route: 042
     Dates: start: 20050616
  4. ZOFRAN [Suspect]
     Indication: NAUSEA
     Dosage: 2MG PER ML; 1 DOSE FORM (FREQUENCY:  CYCLIC), INTRAVENOUS
     Route: 042
     Dates: start: 20050616
  5. GEMZAR [Suspect]
     Indication: BREAST CANCER
     Dosage: (1000 MG), INTRAVENOUS
     Route: 042
     Dates: start: 20050817, end: 20060510
  6. NITROGLYCERIN [Concomitant]
  7. POTASSIUM CHLORATE (POTASSIUM CHLORATE) [Concomitant]
  8. DIGOXIN [Concomitant]
  9. OMEPRAZOLE [Concomitant]
  10. FUROSEMIDE [Concomitant]
  11. ALL OTHER THERAPEUTIC PRODUCTS (ALL OTHER THERAPEUTIC PRODUCTS) [Concomitant]
  12. TRIMETAZIDINE DIHYDROCHLORIDE (TRIMETAZIDINE DIHYDROCHLORIDE) [Concomitant]

REACTIONS (5)
  - CARDIAC FAILURE [None]
  - DELAYED EFFECTS OF RADIATION [None]
  - DRUG INEFFECTIVE [None]
  - FORCED EXPIRATORY VOLUME DECREASED [None]
  - PULMONARY FUNCTION TEST ABNORMAL [None]
